FAERS Safety Report 5999959-0 (Version None)
Quarter: 2008Q4

REPORT INFORMATION
  Report Type: 
  Country: None (occurrence: None)
  Receive Date: 20081215
  Receipt Date: 20081209
  Transmission Date: 20090506
  Serious: Yes (Death, Hospitalization)
  Sender: FDA-Public Use
  Company Number: PHEH2008US10143

PATIENT
  Sex: Female
  Weight: 55.782 kg

DRUGS (21)
  1. RECLAST [Suspect]
     Indication: OSTEOPOROSIS
     Dosage: 5 MG, ONCE/SINGLE
     Route: 042
     Dates: start: 20081006
  2. TRICOR [Concomitant]
     Dosage: 145 MG, QD
  3. ZOCOR [Concomitant]
  4. LISINOPRIL AND HYDROCHLOROTHIAZIDE [Concomitant]
     Dosage: 20  MG LISIN/12.5 MG HCTZ QD
  5. CALCIUM [Concomitant]
     Dosage: 600 MG, BID
  6. VITAMIN D [Concomitant]
     Dosage: 400 MG, BID
  7. VITAMIN E [Concomitant]
     Dosage: 400 MG, UNK
  8. FOLIC ACID [Concomitant]
     Dosage: 400 MG, QD
  9. FLAXSEED OIL [Concomitant]
     Dosage: 1000 MG, QD
  10. VITAMIN B [Concomitant]
  11. MULTIVITAMIN ^LAPPE^ [Concomitant]
  12. ASPIRIN [Concomitant]
     Dosage: 81 MG, UNK
  13. ASCORBIC ACID [Concomitant]
     Dosage: 500 MG, QD
  14. MAGNESIUM SULFATE [Concomitant]
     Dosage: 250 MG, QD
  15. FISH OIL [Concomitant]
     Dosage: 1000 MG, QD
  16. VITAMIN B COMPLEX CAP [Concomitant]
  17. STOOL SOFTENER [Concomitant]
     Dosage: UNK
  18. PROTONIX [Concomitant]
     Indication: PROPHYLAXIS AGAINST GASTROINTESTINAL ULCER
     Dosage: 40 MG, UNK
     Dates: start: 20081013
  19. ATROVENT [Concomitant]
     Dosage: UNK
  20. HEPARIN [Concomitant]
     Indication: THROMBOSIS PROPHYLAXIS
     Dosage: 5000 U
  21. ALBUTEROL [Concomitant]

REACTIONS (56)
  - ABDOMINAL PAIN [None]
  - ACTIVATED PARTIAL THROMBOPLASTIN TIME [None]
  - ACUTE PRERENAL FAILURE [None]
  - ACUTE RESPIRATORY DISTRESS SYNDROME [None]
  - ACUTE RESPIRATORY FAILURE [None]
  - ALANINE AMINOTRANSFERASE INCREASED [None]
  - ANAEMIA [None]
  - ASPARTATE AMINOTRANSFERASE INCREASED [None]
  - ASTHENIA [None]
  - ATELECTASIS [None]
  - BLOOD ALBUMIN DECREASED [None]
  - BLOOD ALKALINE PHOSPHATASE INCREASED [None]
  - BLOOD CREATININE INCREASED [None]
  - BLOOD CULTURE POSITIVE [None]
  - BLOOD LACTATE DEHYDROGENASE INCREASED [None]
  - BLOOD UREA INCREASED [None]
  - BRAIN NATRIURETIC PEPTIDE INCREASED [None]
  - BREATH SOUNDS ABNORMAL [None]
  - CHILLS [None]
  - DECREASED APPETITE [None]
  - DEHYDRATION [None]
  - DISSEMINATED INTRAVASCULAR COAGULATION [None]
  - DIVERTICULUM [None]
  - DYSPNOEA [None]
  - FIBRIN D DIMER INCREASED [None]
  - FLANK PAIN [None]
  - HAEMATOCRIT DECREASED [None]
  - HAEMOGLOBIN DECREASED [None]
  - HEADACHE [None]
  - HEPATIC ENZYME ABNORMAL [None]
  - HEPATIC NEOPLASM [None]
  - HYPOGAMMAGLOBULINAEMIA [None]
  - HYPOKALAEMIA [None]
  - HYPOMAGNESAEMIA [None]
  - HYPOTENSION [None]
  - INFLUENZA LIKE ILLNESS [None]
  - IRON BINDING CAPACITY TOTAL DECREASED [None]
  - MULTI-ORGAN FAILURE [None]
  - NAUSEA [None]
  - OEDEMA [None]
  - PAIN [None]
  - PNEUMONIA BACTERIAL [None]
  - PROTHROMBIN TIME PROLONGED [None]
  - PULMONARY OEDEMA [None]
  - RALES [None]
  - RENAL FAILURE [None]
  - RESTLESSNESS [None]
  - SEPTIC SHOCK [None]
  - SERUM FERRITIN INCREASED [None]
  - TACHYCARDIA [None]
  - TACHYPNOEA [None]
  - THROMBOCYTOPENIA [None]
  - TROPONIN INCREASED [None]
  - URINE OUTPUT DECREASED [None]
  - VOMITING [None]
  - WHITE BLOOD CELL COUNT INCREASED [None]
